FAERS Safety Report 15941690 (Version 1)
Quarter: 2019Q1

REPORT INFORMATION
  Report Type: Spontaneous
  Country: US (occurrence: US)
  Receive Date: 20190210
  Receipt Date: 20190210
  Transmission Date: 20190417
  Serious: Yes (Disabling, Other)
  Sender: FDA-Public Use
  Company Number: None

PATIENT
  Age: 28 Year
  Sex: Female
  Weight: 80.55 kg

DRUGS (1)
  1. AMPHETAMINE-DEXTROAMPHETAMINE [Suspect]
     Active Substance: AMPHETAMINE SULFATE\DEXTROAMPHETAMINE
     Indication: ATTENTION DEFICIT/HYPERACTIVITY DISORDER
     Dosage: ?          QUANTITY:1 CAPSULE(S);?
     Route: 048
     Dates: start: 20190207, end: 20190210

REACTIONS (11)
  - Hypoaesthesia [None]
  - Neck pain [None]
  - Diarrhoea [None]
  - Confusional state [None]
  - Fatigue [None]
  - Chest discomfort [None]
  - Dizziness [None]
  - Muscle twitching [None]
  - Paraesthesia [None]
  - Facial spasm [None]
  - Asthenia [None]

NARRATIVE: CASE EVENT DATE: 20190209
